FAERS Safety Report 6164529-0 (Version None)
Quarter: 2009Q2

REPORT INFORMATION
  Report Type: 
  Country: None (occurrence: None)
  Receive Date: 20090421
  Receipt Date: 20090407
  Transmission Date: 20091009
  Serious: Yes (Other)
  Sender: FDA-Public Use
  Company Number: 1000005449

PATIENT
  Age: 79 Year
  Sex: Female
  Weight: 72.5 kg

DRUGS (6)
  1. MEMANTINE HCL [Suspect]
     Dosage: ORAL
     Route: 048
     Dates: start: 20090223
  2. LASIX [Suspect]
     Dosage: ORAL
     Route: 048
  3. PREVISCAN [Concomitant]
  4. STABLON [Concomitant]
  5. ALDACTONE [Concomitant]
  6. FLECAINE [Concomitant]

REACTIONS (1)
  - PHOTOSENSITIVITY REACTION [None]
